FAERS Safety Report 6212947-4 (Version None)
Quarter: 2009Q2

REPORT INFORMATION
  Report Type: 
  Country: None (occurrence: None)
  Receive Date: 20090603
  Receipt Date: 20090526
  Transmission Date: 20091009
  Serious: Yes (Life-Threatening, Hospitalization)
  Sender: FDA-Public Use
  Company Number: US-NOVOPROD-287712

PATIENT
  Age: 18 Year
  Sex: Female

DRUGS (3)
  1. NOVOLOG [Suspect]
     Indication: TYPE 1 DIABETES MELLITUS
     Dosage: 220 IU, SINGLE
     Route: 058
     Dates: start: 20090515, end: 20090515
  2. NOVOLOG [Suspect]
     Route: 058
  3. LEVEMIR [Suspect]
     Indication: TYPE 1 DIABETES MELLITUS
     Dosage: UNK, UNK
     Route: 058

REACTIONS (4)
  - BLOOD GLUCOSE DECREASED [None]
  - HOMICIDAL IDEATION [None]
  - INTENTIONAL OVERDOSE [None]
  - SUICIDE ATTEMPT [None]
